FAERS Safety Report 6188731-7 (Version None)
Quarter: 2009Q2

REPORT INFORMATION
  Report Type: 
  Country: None (occurrence: None)
  Receive Date: 20090513
  Receipt Date: 20090508
  Transmission Date: 20091009
  Serious: Yes (Hospitalization)
  Sender: FDA-Public Use
  Company Number: US-B.I. PHARMACEUTICALS,INC./RIDGEFIELD-2009-BP-05753BP

PATIENT
  Sex: Male

DRUGS (9)
  1. FLOMAX [Suspect]
     Indication: BENIGN PROSTATIC HYPERPLASIA
     Dosage: .4MG
     Route: 048
     Dates: start: 20090301, end: 20090415
  2. CLARINEX [Concomitant]
     Indication: MULTIPLE ALLERGIES
  3. BENICAR [Concomitant]
     Indication: HYPERTENSION
  4. FLONASE (GENERIC) [Concomitant]
     Indication: MULTIPLE ALLERGIES
  5. LOW DOSE ASA [Concomitant]
     Indication: ARTHRITIS
  6. SUBLINUAL ALLERGY GTTS [Concomitant]
     Indication: MULTIPLE ALLERGIES
     Route: 060
  7. TOPICAL OINTMENTS FOR ITCH [Concomitant]
     Indication: MULTIPLE ALLERGIES
  8. TOPICAL OINTMENTS FOR ITCH [Concomitant]
     Indication: PRURITUS
  9. FLU SHOT [Concomitant]

REACTIONS (2)
  - CHEST PAIN [None]
  - NASAL CONGESTION [None]
